FAERS Safety Report 4386820-0 (Version None)
Quarter: 2004Q2

REPORT INFORMATION
  Report Type: 
  Country: None (occurrence: None)
  Receive Date: 20040628
  Receipt Date: 20040628
  Transmission Date: 20050107
  Serious: Yes (Death, Hospitalization)
  Sender: FDA-Public Use
  Company Number: None

PATIENT
  Sex: Female
  Weight: 81.6475 kg

DRUGS (2)
  1. AMIODARONE HCL [Suspect]
     Indication: HEART RATE IRREGULAR
     Dosage: 1X A DAY
     Dates: start: 20011222, end: 20020613
  2. COUMADIN [Concomitant]

REACTIONS (3)
  - PARKINSON'S DISEASE [None]
  - PULMONARY TOXICITY [None]
  - TREMOR [None]
